FAERS Safety Report 24950196 (Version 2)
Quarter: 2025Q1

REPORT INFORMATION
  Report Type: Spontaneous
  Country: US (occurrence: US)
  Receive Date: 20250210
  Receipt Date: 20250306
  Transmission Date: 20250409
  Serious: Yes (Other)
  Sender: BAYER HEALTHCARE PHARMACEUTICALS INC.
  Company Number: US-BAYER-2025A015621

PATIENT
  Age: 32 Year
  Sex: Female
  Weight: 102.49 kg

DRUGS (1)
  1. MIRENA [Suspect]
     Active Substance: LEVONORGESTREL
     Indication: Intrauterine contraception
     Dosage: 20?G/DAY
     Route: 015
     Dates: start: 20240130

REACTIONS (7)
  - Polycystic ovarian syndrome [None]
  - Device expulsion [Recovered/Resolved]
  - Vaginal discharge [None]
  - Pruritus genital [None]
  - Vaginal odour [None]
  - Menstruation irregular [None]
  - Dyspareunia [None]
